FAERS Safety Report 8227633-9 (Version None)
Quarter: 2012Q1

REPORT INFORMATION
  Report Type: 
  Country: None (occurrence: None)
  Receive Date: 20120322
  Receipt Date: 20120315
  Transmission Date: 20120608
  Serious: Yes (Death, Hospitalization)
  Sender: FDA-Public Use
  Company Number: US-ASTRAZENECA-2012SE17491

PATIENT
  Age: 1033 Month
  Sex: Female
  Weight: 64 kg

DRUGS (5)
  1. ARIMIDEX [Suspect]
     Indication: BREAST CANCER
     Route: 048
     Dates: start: 20090428, end: 20110106
  2. HORMONAL THERAPY [Concomitant]
     Dates: start: 20090401, end: 20110101
  3. FASLODEX [Suspect]
     Indication: BREAST CANCER
     Route: 030
     Dates: start: 20090428, end: 20101208
  4. CARBOPLATIN [Suspect]
     Route: 042
     Dates: start: 20101111, end: 20101111
  5. TAXOL [Suspect]
     Route: 042
     Dates: start: 20101111, end: 20101111

REACTIONS (4)
  - DEATH [None]
  - FATIGUE [None]
  - ATRIAL FIBRILLATION [None]
  - DIARRHOEA [None]
